FAERS Safety Report 20694410 (Version 1)
Quarter: 2022Q2

REPORT INFORMATION
  Report Type: Spontaneous
  Country: RO (occurrence: RO)
  Receive Date: 20220411
  Receipt Date: 20220411
  Transmission Date: 20220721
  Serious: Yes (Other)
  Sender: FDA-Public Use
  Company Number: RO-AMGEN-ROUSP2022060155

PATIENT
  Age: 64 Year
  Sex: Female

DRUGS (13)
  1. VECTIBIX [Suspect]
     Active Substance: PANITUMUMAB
     Indication: Colorectal cancer metastatic
     Dosage: 6 MILLIGRAM/KILOGRAM, Q2WK
  2. FLUOROURACIL [Concomitant]
     Active Substance: FLUOROURACIL
     Indication: Colorectal cancer metastatic
     Dosage: 600 MG / SQM DAY1-DAY2
  3. FLUOROURACIL [Concomitant]
     Active Substance: FLUOROURACIL
     Dosage: 400 MG / SQM
  4. OXALIPLATIN [Concomitant]
     Active Substance: OXALIPLATIN
     Indication: Colorectal cancer metastatic
     Dosage: 130 MG / SQM DAY 1
  5. OXALIPLATIN [Concomitant]
     Active Substance: OXALIPLATIN
     Dosage: 85 MG / SQM
  6. LEUCOVORIN [Concomitant]
     Active Substance: LEUCOVORIN
     Indication: Colorectal cancer metastatic
     Dosage: 400 MG / SQM DAY1
  7. CAPECITABINE [Concomitant]
     Active Substance: CAPECITABINE
     Indication: Colorectal cancer metastatic
     Dosage: 2 G / SQM DAY1-DAY14
  8. IRINOTECAN [Concomitant]
     Active Substance: IRINOTECAN
     Indication: Colorectal cancer metastatic
     Dosage: 240 MG / SQM D1
     Dates: start: 202107
  9. ATORVASTATIN CALCIUM [Concomitant]
     Active Substance: ATORVASTATIN CALCIUM
     Indication: Colorectal cancer metastatic
     Dosage: 7.5 MILLIGRAM/KILOGRAM, Q3WK
     Dates: start: 202107
  10. ZOMETA [Concomitant]
     Active Substance: ZOLEDRONIC ACID
     Indication: Colorectal cancer metastatic
     Dosage: 4 MILLIGRAM, EVERY 28 DAYS
  11. NIVOLUMAB [Concomitant]
     Active Substance: NIVOLUMAB
     Indication: Colorectal cancer metastatic
  12. IPILIMUMAB [Concomitant]
     Active Substance: IPILIMUMAB
     Indication: Colorectal cancer metastatic
  13. PEMBROLIZUMAB [Concomitant]
     Active Substance: PEMBROLIZUMAB
     Indication: Colorectal cancer metastatic

REACTIONS (12)
  - Metastases to ovary [Unknown]
  - Adenocarcinoma of colon [Unknown]
  - Metastases to lung [Unknown]
  - Metastases to bone [Unknown]
  - Hepatic cytolysis [Unknown]
  - Autoimmune hypothyroidism [Unknown]
  - Skin toxicity [Unknown]
  - Therapy partial responder [Unknown]
  - Adnexa uteri mass [Unknown]
  - Peritoneal disorder [Unknown]
  - Liver disorder [Unknown]
  - Drug resistance [Unknown]
